FAERS Safety Report 9637664 (Version 1)
Quarter: 2013Q4

REPORT INFORMATION
  Report Type: Spontaneous
  Country: FR (occurrence: FR)
  Receive Date: 20131022
  Receipt Date: 20131022
  Transmission Date: 20140711
  Serious: Yes (Hospitalization, Other)
  Sender: FDA-Public Use
  Company Number: FR-PFIZER INC-2013295625

PATIENT
  Age: 75 Year
  Sex: Female

DRUGS (4)
  1. CELEBREX [Suspect]
     Dosage: UNK
     Route: 048
     Dates: start: 201307, end: 20130824
  2. VOLTARENE [Suspect]
     Dosage: UNK
     Route: 048
     Dates: start: 20130819, end: 20130824
  3. PRETERAX [Concomitant]
     Dosage: 1 DF, 1X/DAY
     Route: 048
     Dates: start: 2012
  4. DEROXAT [Concomitant]
     Dosage: UNK
     Route: 048
     Dates: start: 2012

REACTIONS (1)
  - Enterocolitis haemorrhagic [Recovering/Resolving]
